FAERS Safety Report 8538207-4 (Version None)
Quarter: 2012Q3

REPORT INFORMATION
  Report Type: 
  Country: None (occurrence: None)
  Receive Date: 20120726
  Receipt Date: 20120720
  Transmission Date: 20120928
  Serious: Yes (Hospitalization)
  Sender: FDA-Public Use
  Company Number: US-BIOGENIDEC-2012BI017589

PATIENT
  Age: 62 Year
  Sex: Male
  Weight: 92 kg

DRUGS (22)
  1. ASPIRIN [Concomitant]
     Indication: CORONARY ARTERY DISEASE
     Route: 048
  2. TYSABRI [Suspect]
     Indication: CROHN'S DISEASE
     Route: 042
     Dates: start: 20101004
  3. ZYLOPRIM [Concomitant]
     Indication: GOUT
     Route: 048
  4. MONOPRIL [Concomitant]
     Indication: HYPERTENSION
     Route: 048
  5. TYLENOL [Concomitant]
     Indication: PAIN
     Route: 048
  6. TYLENOL [Concomitant]
     Route: 048
  7. VITAMIN D [Concomitant]
     Route: 048
  8. LASIX [Concomitant]
     Indication: HYPERTENSION
     Route: 048
  9. ASACOL [Concomitant]
     Indication: CROHN'S DISEASE
     Route: 048
  10. COREG [Concomitant]
     Indication: HYPERTENSION
     Route: 048
  11. PRILOSEC [Concomitant]
     Indication: GASTROOESOPHAGEAL REFLUX DISEASE
     Route: 048
  12. FISH OIL [Concomitant]
     Route: 048
  13. VICODIN [Concomitant]
     Route: 048
  14. NIACIN [Concomitant]
     Indication: HYPERCHOLESTEROLAEMIA
     Route: 048
  15. ZYLOPRIM [Concomitant]
     Route: 048
  16. NEURONTIN [Concomitant]
     Indication: NEUROPATHY PERIPHERAL
     Route: 048
  17. ACTOS [Concomitant]
     Indication: DIABETES MELLITUS
     Route: 048
  18. JANUVIA [Concomitant]
     Indication: DIABETES MELLITUS
     Route: 048
  19. QUESTRAN [Concomitant]
     Indication: HYPERCHOLESTEROLAEMIA
     Route: 048
  20. FOLIC ACID [Concomitant]
     Route: 048
  21. MULTI-VITAMIN [Concomitant]
     Route: 048
  22. VICODIN [Concomitant]
     Indication: PAIN
     Route: 048

REACTIONS (2)
  - DYSPHAGIA [None]
  - INTERVERTEBRAL DISC PROTRUSION [None]
